FAERS Safety Report 5590941-4 (Version None)
Quarter: 2007Q4

REPORT INFORMATION
  Report Type: 
  Country: None (occurrence: None)
  Receive Date: 20071214
  Receipt Date: 20070803
  Transmission Date: 20080405
  Serious: Yes (Hospitalization)
  Sender: FDA-Public Use
  Company Number: S07-USA-03338-01

PATIENT

DRUGS (2)
  1. NAMENDA [Suspect]
     Indication: DEMENTIA
  2. ARICEPT [Suspect]

REACTIONS (1)
  - ORTHOSTATIC HYPOTENSION [None]
